FAERS Safety Report 7341680-0 (Version None)
Quarter: 2011Q1

REPORT INFORMATION
  Report Type: 
  Country: None (occurrence: None)
  Receive Date: 20110309
  Receipt Date: 20110303
  Transmission Date: 20110831
  Serious: Yes (Other)
  Sender: FDA-Public Use
  Company Number: US-PFIZER INC-2011004895

PATIENT
  Sex: Male
  Weight: 69 kg

DRUGS (6)
  1. TOPROL-XL [Concomitant]
     Indication: HYPERTENSION
     Dosage: 100 MG, 1X/DAY
  2. NORVASC [Suspect]
     Indication: HYPERTENSION
     Dosage: 5 MG, 1X/DAY
     Route: 048
     Dates: start: 20101227, end: 20101230
  3. LIPITOR [Concomitant]
     Indication: HYPERCHOLESTEROLAEMIA
     Dosage: 20 MG, UNK
  4. ADVAIR DISKUS 100/50 [Concomitant]
     Indication: ASTHMA
     Dosage: 50/250,  TWICE DAILY
  5. CELEBREX [Concomitant]
     Indication: OSTEOARTHRITIS
     Dosage: 200 MG, 1X/DAY
  6. ASPIRIN [Concomitant]
     Dosage: 80 MG, 1X/DAY

REACTIONS (3)
  - IDIOSYNCRATIC DRUG REACTION [None]
  - MUSCULOSKELETAL STIFFNESS [None]
  - MUSCULOSKELETAL PAIN [None]
